FAERS Safety Report 4393229-2 (Version None)
Quarter: 2004Q3

REPORT INFORMATION
  Report Type: 
  Country: None (occurrence: None)
  Receive Date: 20040701
  Receipt Date: 20040617
  Transmission Date: 20050211
  Serious: No
  Sender: FDA-Public Use
  Company Number: 2004GB01394

PATIENT
  Age: 54 Year
  Sex: Female

DRUGS (1)
  1. GEFITINIB [Suspect]
     Indication: NON-SMALL CELL LUNG CANCER
     Dosage: 250 MG QD PO
     Route: 048
     Dates: start: 20031101

REACTIONS (3)
  - LOCALISED EXFOLIATION [None]
  - SKIN BLEEDING [None]
  - SKIN DISORDER [None]
